FAERS Safety Report 10208432 (Version 1)
Quarter: 2014Q2

REPORT INFORMATION
  Report Type: Spontaneous
  Country: US (occurrence: US)
  Receive Date: 20140530
  Receipt Date: 20140530
  Transmission Date: 20141212
  Serious: Yes (Other)
  Sender: FDA-Public Use
  Company Number: US-GLAXOSMITHKLINE-A1074202A

PATIENT
  Age: 71 Year
  Sex: Female

DRUGS (5)
  1. ADVAIR HFA [Suspect]
     Indication: ASTHMA
     Route: 055
  2. FLOVENT [Suspect]
     Indication: ASTHMA
     Dosage: 2PUFF TWICE PER DAY
     Route: 055
  3. ALBUTEROL [Concomitant]
  4. ATENOLOL [Concomitant]
  5. ATIVAN [Concomitant]

REACTIONS (5)
  - Bronchiectasis [Not Recovered/Not Resolved]
  - Nervousness [Recovered/Resolved]
  - Insomnia [Unknown]
  - Cough [Not Recovered/Not Resolved]
  - Bronchitis [Not Recovered/Not Resolved]
